FAERS Safety Report 17495678 (Version 1)
Quarter: 2020Q1

REPORT INFORMATION
  Report Type: Spontaneous
  Country: US (occurrence: US)
  Receive Date: 20200304
  Receipt Date: 20200304
  Transmission Date: 20200409
  Serious: No
  Sender: FDA-Public Use
  Company Number: None

PATIENT
  Age: 12 Year
  Sex: Male
  Weight: 54 kg

DRUGS (2)
  1. FISH OIL SUPPLEMENT [Concomitant]
     Active Substance: FISH OIL
  2. METHYLPHENIDATE HC 36MG TBC; NDC 00591-2717-01 MFG ACTAV [Suspect]
     Active Substance: METHYLPHENIDATE HYDROCHLORIDE
     Indication: ATTENTION DEFICIT/HYPERACTIVITY DISORDER
     Dosage: ?          QUANTITY:30 TABLET(S);?
     Route: 048
     Dates: start: 20200206, end: 20200303

REACTIONS (4)
  - Insurance issue [None]
  - Educational problem [None]
  - Abnormal behaviour [None]
  - Product substitution issue [None]

NARRATIVE: CASE EVENT DATE: 20200303
